FAERS Safety Report 24611918 (Version 1)
Quarter: 2024Q4

REPORT INFORMATION
  Report Type: Spontaneous
  Country: IT (occurrence: IT)
  Receive Date: 20241113
  Receipt Date: 20241113
  Transmission Date: 20250114
  Serious: Yes (Other)
  Sender: SANDOZ
  Company Number: IT-Medice Arzneimittel-MDKRSPO-31398

PATIENT
  Age: 15 Year
  Sex: Male

DRUGS (2)
  1. METHYLPHENIDATE [Suspect]
     Active Substance: METHYLPHENIDATE
     Indication: Product used for unknown indication
     Dosage: 40 MG 5 DAYS/WEEKUNK
     Route: 065
  2. METHYLPHENIDATE HYDROCHLORIDE [Suspect]
     Active Substance: METHYLPHENIDATE HYDROCHLORIDE
     Indication: Product used for unknown indication
     Dosage: RITALIN FOR LUNCH 3 TIMES/WEEKUNK
     Route: 065

REACTIONS (4)
  - Erectile dysfunction [Unknown]
  - Suicidal ideation [Unknown]
  - Suicide attempt [Unknown]
  - Off label use [Unknown]
